FAERS Safety Report 7763113-2 (Version None)
Quarter: 2011Q3

REPORT INFORMATION
  Report Type: 
  Country: None (occurrence: None)
  Receive Date: 20110920
  Receipt Date: 20110907
  Transmission Date: 20111222
  Serious: Yes (Other)
  Sender: FDA-Public Use
  Company Number: PHEH2011US02008

PATIENT
  Sex: Male

DRUGS (5)
  1. TASIGNA [Suspect]
     Dosage: 1 DF, QD
     Route: 048
     Dates: start: 20110819
  2. COLCHICINE [Concomitant]
     Dosage: 0.6 MG, PRN
     Route: 048
  3. ZOMETA [Concomitant]
     Dosage: UNK UKN, QMO
     Route: 042
  4. LORTAB [Concomitant]
     Indication: PAIN
     Dosage: UNK UKN, PRN
     Route: 048
  5. TASIGNA [Suspect]
     Indication: MASTOCYTOSIS
     Dosage: 400 MG, BID
     Route: 048
     Dates: start: 20110725

REACTIONS (8)
  - ASTHENIA [None]
  - ABDOMINAL PAIN UPPER [None]
  - RENAL PAIN [None]
  - HYPERTENSION [None]
  - FATIGUE [None]
  - PYREXIA [None]
  - MUSCULOSKELETAL DISCOMFORT [None]
  - CHILLS [None]
